FAERS Safety Report 6071400-1 (Version None)
Quarter: 2009Q1

REPORT INFORMATION
  Report Type: 
  Country: None (occurrence: None)
  Receive Date: 20090130
  Receipt Date: 20090121
  Transmission Date: 20090719
  Serious: Yes (Hospitalization)
  Sender: FDA-Public Use
  Company Number: 2009US000125

PATIENT
  Age: 34 Year
  Sex: Male
  Weight: 80.3 kg

DRUGS (2)
  1. AMEVIVE [Suspect]
     Indication: DERMATITIS ATOPIC
     Dosage: 15 MG, WEEKLY, INTRAMUSCULAR
     Route: 030
     Dates: start: 20081126
  2. METHOTREXATE [Concomitant]

REACTIONS (2)
  - ARTHRITIS INFECTIVE [None]
  - JOINT EFFUSION [None]
